FAERS Safety Report 22341129 (Version 1)
Quarter: 2023Q2

REPORT INFORMATION
  Report Type: Spontaneous
  Country: US (occurrence: US)
  Receive Date: 20230518
  Receipt Date: 20230518
  Transmission Date: 20230721
  Serious: Yes (Other)
  Sender: FDA-Public Use
  Company Number: US-APIL-2314773US

PATIENT
  Sex: Female

DRUGS (1)
  1. ENABLEX [Suspect]
     Active Substance: DARIFENACIN HYDROBROMIDE
     Indication: Product used for unknown indication

REACTIONS (2)
  - Spinal operation [Unknown]
  - Gait disturbance [Unknown]
